FAERS Safety Report 8390500-4 (Version None)
Quarter: 2012Q2

REPORT INFORMATION
  Report Type: 
  Country: None (occurrence: None)
  Receive Date: 20120529
  Receipt Date: 20120524
  Transmission Date: 20120825
  Serious: Yes (Death, Hospitalization)
  Sender: FDA-Public Use
  Company Number: US-JNJFOC-20120518942

PATIENT
  Age: 49 Year
  Sex: Female

DRUGS (9)
  1. OMEPRAZOLE [Concomitant]
     Route: 048
  2. CYMBALTA [Concomitant]
     Route: 048
  3. NORTRIPTYLINE HCL [Concomitant]
     Route: 048
  4. NUCYNTA [Suspect]
     Indication: ANALGESIC THERAPY
     Dosage: FOUR IN ONE DAY
     Route: 048
     Dates: start: 20111101
  5. MIRALAX [Concomitant]
     Route: 048
  6. VIIBRYD [Concomitant]
     Route: 048
  7. KLONOPIN [Concomitant]
     Route: 048
  8. TOPIRAMATE [Suspect]
     Indication: PRODUCT USED FOR UNKNOWN INDICATION
     Route: 048
  9. LOMOTIL [Concomitant]
     Route: 048

REACTIONS (4)
  - AUTOIMMUNE HEPATITIS [None]
  - MULTI-ORGAN FAILURE [None]
  - MALNUTRITION [None]
  - ANAEMIA [None]
